FAERS Safety Report 22369356 (Version 1)
Quarter: 2023Q2

REPORT INFORMATION
  Report Type: Report from Study
  Country: AU (occurrence: AU)
  Receive Date: 20230526
  Receipt Date: 20230526
  Transmission Date: 20230721
  Serious: Yes (Other)
  Sender: FDA-Public Use
  Company Number: AU-ABBVIE-5177111

PATIENT
  Sex: Male

DRUGS (4)
  1. CARBIDOPA\LEVODOPA [Suspect]
     Active Substance: CARBIDOPA\LEVODOPA
     Indication: Parkinson^s disease
     Dosage: THE PATIENT RECEIVED DUODOPA 100ML GEL CASSETTE?CONTINUOUS DUODOPA INFUSION RATE FROM 6.2 TO 6.1 ...
     Route: 050
     Dates: start: 20191029
  2. CARBIDOPA\LEVODOPA [Suspect]
     Active Substance: CARBIDOPA\LEVODOPA
     Dosage: DOSE DECREASED?THE PATIENT RECEIVED DUODOPA 100ML GEL CASSETTE?REDUCE THIS TO 6.0 AFTER 1-2 WEEKS
     Route: 050
  3. ROTIGOTINE [Concomitant]
     Active Substance: ROTIGOTINE
     Indication: Product used for unknown indication
  4. AMANTADINE [Concomitant]
     Active Substance: AMANTADINE
     Indication: Product used for unknown indication
     Dosage: DOSE DECREASED

REACTIONS (8)
  - Probiotic therapy [Unknown]
  - Neuropathy peripheral [Recovering/Resolving]
  - Sensory loss [Unknown]
  - Parkinson^s disease [Not Recovered/Not Resolved]
  - Dependence [Unknown]
  - Disorientation [Unknown]
  - Slow response to stimuli [Unknown]
  - Dyskinesia [Unknown]

NARRATIVE: CASE EVENT DATE: 20230101
